FAERS Safety Report 24960327 (Version 1)
Quarter: 2025Q1

REPORT INFORMATION
  Report Type: Spontaneous
  Country: GB (occurrence: GB)
  Receive Date: 20250212
  Receipt Date: 20250212
  Transmission Date: 20250409
  Serious: Yes (Other)
  Sender: MYLAN
  Company Number: GB-MYLANLABS-2025M1011910

PATIENT
  Age: 70 Year
  Sex: Female

DRUGS (30)
  1. DEXAMETHASONE [Suspect]
     Active Substance: DEXAMETHASONE
     Indication: Episcleritis
     Dosage: UNK DROPS, QID, FOR 1-WEEK
     Route: 047
  2. DEXAMETHASONE [Suspect]
     Active Substance: DEXAMETHASONE
     Indication: Ocular cancer metastatic
     Dosage: UNK DROPS, RECEIVED 3-TIMES A DAY (TID) FOR 1-WEEK
     Route: 047
  3. DEXAMETHASONE [Suspect]
     Active Substance: DEXAMETHASONE
     Dosage: UNK DROPS, QD FOR 1-WEEK
     Route: 047
  4. DEXAMETHASONE [Suspect]
     Active Substance: DEXAMETHASONE
     Dosage: UNK DROPS, QID
     Route: 047
  5. DORZOLAMIDE HYDROCHLORIDE\TIMOLOL MALEATE [Suspect]
     Active Substance: DORZOLAMIDE HYDROCHLORIDE\TIMOLOL MALEATE
     Indication: Ocular cancer metastatic
     Dosage: UNK, BID
     Route: 047
  6. DOXORUBICIN [Suspect]
     Active Substance: DOXORUBICIN
     Indication: Neuroendocrine carcinoma
     Route: 065
  7. DOXORUBICIN [Suspect]
     Active Substance: DOXORUBICIN
     Indication: Lung neoplasm malignant
  8. VINCRISTINE [Suspect]
     Active Substance: VINCRISTINE
     Indication: Neuroendocrine carcinoma
     Route: 065
  9. VINCRISTINE [Suspect]
     Active Substance: VINCRISTINE
     Indication: Lung neoplasm malignant
  10. CYCLOPENTOLATE [Suspect]
     Active Substance: CYCLOPENTOLATE
     Indication: Ocular cancer metastatic
     Route: 061
  11. HYALURONATE SODIUM [Suspect]
     Active Substance: HYALURONATE SODIUM
     Indication: Episcleritis
     Route: 047
  12. HYALURONATE SODIUM [Suspect]
     Active Substance: HYALURONATE SODIUM
     Indication: Ocular cancer metastatic
  13. VITAMIN A PALMITATE [Suspect]
     Active Substance: VITAMIN A PALMITATE
     Indication: Ocular cancer metastatic
     Dosage: UNK, HS (ONCE AT NIGHT)
     Route: 047
  14. CYCLOPHOSPHAMIDE [Suspect]
     Active Substance: CYCLOPHOSPHAMIDE
     Indication: Neuroendocrine carcinoma
     Route: 065
  15. CYCLOPHOSPHAMIDE [Suspect]
     Active Substance: CYCLOPHOSPHAMIDE
     Indication: Lung neoplasm malignant
  16. PREDNISOLONE [Concomitant]
     Active Substance: PREDNISOLONE
     Indication: Episcleritis
     Route: 048
  17. CARBOPLATIN [Concomitant]
     Active Substance: CARBOPLATIN
     Indication: Neuroendocrine carcinoma
     Route: 065
  18. CARBOPLATIN [Concomitant]
     Active Substance: CARBOPLATIN
     Indication: Lung neoplasm malignant
  19. ETOPOSIDE [Concomitant]
     Active Substance: ETOPOSIDE
     Indication: Neuroendocrine carcinoma
     Route: 065
  20. ETOPOSIDE [Concomitant]
     Active Substance: ETOPOSIDE
     Indication: Lung neoplasm malignant
  21. BRIMONIDINE TARTRATE [Concomitant]
     Active Substance: BRIMONIDINE TARTRATE
     Indication: Ocular cancer metastatic
     Dosage: RECEIVED 2-MG/ML DROPS, BID
     Route: 047
  22. HYLO FORTE [Concomitant]
     Indication: Episcleritis
     Dosage: UNK, QID
     Route: 065
  23. HYLO FORTE [Concomitant]
     Indication: Ocular cancer metastatic
  24. TIMOLOL MALEATE [Concomitant]
     Active Substance: TIMOLOL MALEATE
     Indication: Episcleritis
     Dosage: RECEIVED 5MG/ML DROPS, BID
     Route: 047
  25. BIMATOPROST [Concomitant]
     Active Substance: BIMATOPROST
     Indication: Episcleritis
     Dosage: UNK, QD
     Route: 047
  26. ACETAZOLAMIDE [Concomitant]
     Active Substance: ACETAZOLAMIDE
     Indication: Episcleritis
     Dosage: UNK, QD
     Route: 047
  27. ACETAZOLAMIDE [Concomitant]
     Active Substance: ACETAZOLAMIDE
     Indication: Ocular cancer metastatic
  28. ACETAZOLAMIDE [Concomitant]
     Active Substance: ACETAZOLAMIDE
     Indication: Episcleritis
     Dosage: 250 MILLIGRAM, QD
     Route: 065
  29. ACETAZOLAMIDE [Concomitant]
     Active Substance: ACETAZOLAMIDE
     Indication: Ocular cancer metastatic
  30. LATANOPROST [Concomitant]
     Active Substance: LATANOPROST
     Indication: Ocular cancer metastatic
     Dosage: UNK DROPS, QD
     Route: 047

REACTIONS (3)
  - Drug ineffective [Unknown]
  - Drug ineffective for unapproved indication [Unknown]
  - Off label use [Unknown]
